FAERS Safety Report 4954711-X (Version None)
Quarter: 2006Q1

REPORT INFORMATION
  Report Type: 
  Country: None (occurrence: None)
  Receive Date: 20060131
  Receipt Date: 20050111
  Transmission Date: 20060701
  Serious: No
  Sender: FDA-Public Use
  Company Number: 05P-163-0286045-00

PATIENT
  Age: 32 Year
  Sex: Male

DRUGS (1)
  1. OMNICEF [Suspect]
     Indication: PHARYNGITIS
     Dates: start: 20041201

REACTIONS (2)
  - CLOSTRIDIAL INFECTION [None]
  - COLITIS [None]
